FAERS Safety Report 6471240-5 (Version None)
Quarter: 2009Q4

REPORT INFORMATION
  Report Type: 
  Country: None (occurrence: None)
  Receive Date: 20091203
  Receipt Date: 20080220
  Transmission Date: 20100525
  Serious: Yes (Hospitalization)
  Sender: FDA-Public Use
  Company Number: US-ELI_LILLY_AND_COMPANY-US200802004660

PATIENT
  Sex: Male
  Weight: 81.633 kg

DRUGS (5)
  1. BYETTA [Suspect]
     Indication: TYPE 2 DIABETES MELLITUS
     Dosage: 5 UG, 2/D
     Route: 058
     Dates: start: 20070401, end: 20070601
  2. BYETTA [Suspect]
     Dosage: 10 UG, 2/D
     Route: 058
     Dates: start: 20070601
  3. METFORMIN HCL [Concomitant]
     Dosage: 500 MG, 2/D
  4. GLIPIZIDE [Concomitant]
     Dosage: 10 MG, 2/D
  5. INSULIN [Concomitant]
     Indication: TYPE 2 DIABETES MELLITUS
     Dosage: UNK, UNKNOWN
     Dates: start: 20070701, end: 20070101

REACTIONS (9)
  - ARTHROPOD BITE [None]
  - BLOOD GLUCOSE INCREASED [None]
  - DECREASED APPETITE [None]
  - IMPAIRED HEALING [None]
  - NAUSEA [None]
  - PERIPHERAL VASCULAR DISORDER [None]
  - VOMITING [None]
  - WEIGHT DECREASED [None]
  - WOUND INFECTION STAPHYLOCOCCAL [None]
